FAERS Safety Report 8613660-6 (Version None)
Quarter: 2012Q3

REPORT INFORMATION
  Report Type: 
  Country: None (occurrence: None)
  Receive Date: 20120823
  Receipt Date: 20120809
  Transmission Date: 20120928
  Serious: Yes (Hospitalization, Disabling, Other)
  Sender: FDA-Public Use
  Company Number: US-009507513-1201USA00783

PATIENT

DRUGS (20)
  1. FOSAMAX [Suspect]
     Indication: POLYARTHRITIS
     Dosage: 10 MG, QD
     Route: 048
     Dates: start: 19960312, end: 20040722
  2. FOSAMAX [Suspect]
     Indication: OSTEOPOROSIS
     Dosage: 10 MG, UNK
     Route: 048
     Dates: start: 20071216, end: 20080218
  3. PLAQUENIL [Concomitant]
     Dosage: 200 MG, BID
     Dates: end: 19980101
  4. FOSAMAX [Suspect]
  5. HYDROXYCHLOROQUINE SULFATE [Concomitant]
     Dosage: 400 MG, QD
  6. FOSAMAX [Suspect]
  7. DIDRONEL [Concomitant]
  8. DAPRIL [Concomitant]
  9. FOSAMAX [Suspect]
     Dosage: 10 MG, UNK
     Route: 048
     Dates: start: 20080827, end: 20080921
  10. DAYPRO [Concomitant]
     Dosage: 1200 MG, QD
  11. FOSAMAX [Suspect]
     Dosage: 10 MG, QD
     Route: 048
     Dates: start: 20080317, end: 20080701
  12. FOSAMAX [Suspect]
     Dosage: 10 MG, UNK
     Route: 048
     Dates: start: 20080922, end: 20090617
  13. FOSAMAX [Suspect]
     Dosage: 70 MG, QW
     Route: 048
  14. CALCIUM (UNSPECIFIED) [Concomitant]
  15. NONSTEROIDAL ANTI-INFLAMMATORY DRUG (UNSPECIFIED) [Concomitant]
  16. FOSAMAX [Suspect]
  17. VITAMIN D [Concomitant]
  18. TETRACYCLINE [Concomitant]
  19. FOSAMAX [Suspect]
  20. ALENDRONATE SODIUM [Suspect]
     Dosage: 10 MG, UNK
     Route: 048
     Dates: start: 20080317

REACTIONS (39)
  - ANAEMIA POSTOPERATIVE [None]
  - FIBROCYSTIC BREAST DISEASE [None]
  - CONSTIPATION [None]
  - ARTHRALGIA [None]
  - PHOTOSENSITIVITY REACTION [None]
  - TONSILLECTOMY [None]
  - DRY EYE [None]
  - FALL [None]
  - ECCHYMOSIS [None]
  - LYMPHADENECTOMY [None]
  - BLEPHAROSPASM [None]
  - WEIGHT INCREASED [None]
  - ESSENTIAL HYPERTENSION [None]
  - RETINAL TOXICITY [None]
  - DRUG INEFFECTIVE [None]
  - OFF LABEL USE [None]
  - VISUAL FIELD DEFECT [None]
  - STRESS [None]
  - FATIGUE [None]
  - DIVERTICULITIS [None]
  - MIGRAINE WITH AURA [None]
  - INSOMNIA [None]
  - SYSTEMIC LUPUS ERYTHEMATOSUS [None]
  - OVERDOSE [None]
  - CARPAL TUNNEL SYNDROME [None]
  - ADVERSE DRUG REACTION [None]
  - HYPERTENSION [None]
  - POOR QUALITY SLEEP [None]
  - FOOT DEFORMITY [None]
  - TINEA INFECTION [None]
  - PLANTAR FASCIITIS [None]
  - OSTEOARTHRITIS [None]
  - FEMUR FRACTURE [None]
  - FRACTURE NONUNION [None]
  - BLADDER DISORDER [None]
  - URINARY TRACT INFECTION [None]
  - IMPAIRED HEALING [None]
  - MUSCLE SPASMS [None]
  - PAIN IN EXTREMITY [None]
